FAERS Safety Report 17313472 (Version 1)
Quarter: 2020Q1

REPORT INFORMATION
  Report Type: Spontaneous
  Country: US (occurrence: US)
  Receive Date: 20200107
  Receipt Date: 20200107
  Transmission Date: 20200409
  Serious: Yes (Disabling)
  Sender: FDA-Public Use
  Company Number: None

PATIENT
  Age: 84 Year
  Sex: Female
  Weight: 74.84 kg

DRUGS (11)
  1. BUSPAR [Suspect]
     Active Substance: BUSPIRONE HYDROCHLORIDE
  2. MINIOXIDE [Concomitant]
  3. MELLARIL [Suspect]
     Active Substance: THIORIDAZINE HYDROCHLORIDE
  4. CETIRIZINE [Suspect]
     Active Substance: CETIRIZINE HYDROCHLORIDE
  5. UP WALKER [Concomitant]
  6. METOPROLOL. [Concomitant]
     Active Substance: METOPROLOL
  7. HYDROCHLOROTHIAZIDE. [Suspect]
     Active Substance: HYDROCHLOROTHIAZIDE
     Indication: HYPERTENSION
     Dates: start: 2011, end: 201306
  8. AMLODIPINE [Suspect]
     Active Substance: AMLODIPINE BESYLATE
  9. LOSARTAN. [Suspect]
     Active Substance: LOSARTAN
  10. BYSTICIC [Concomitant]
  11. SPIRONOLACTONE. [Suspect]
     Active Substance: SPIRONOLACTONE

REACTIONS (17)
  - Mucosal dryness [None]
  - Dry mouth [None]
  - Dry throat [None]
  - Arrhythmia [None]
  - Nasal dryness [None]
  - Diarrhoea [None]
  - Cold sweat [None]
  - Vomiting [None]
  - Peripheral swelling [None]
  - Bronchitis [None]
  - Pruritus [None]
  - Heart rate irregular [None]
  - Gout [None]
  - Pollakiuria [None]
  - Bone pain [None]
  - Choking [None]
  - Nausea [None]

NARRATIVE: CASE EVENT DATE: 2018
